FAERS Safety Report 8850149 (Version 1)
Quarter: 2012Q4

REPORT INFORMATION
  Report Type: 
  Country: US (occurrence: US)
  Receive Date: 20121019
  Receipt Date: 20121019
  Transmission Date: 20130627
  Serious: Yes (Death, Hospitalization)
  Sender: FDA-Public Use
  Company Number: US-GLAXOSMITHKLINE-A0997329A

PATIENT
  Age: 81 Year
  Sex: Male

DRUGS (9)
  1. PROMACTA [Suspect]
     Indication: IDIOPATHIC THROMBOCYTOPENIC PURPURA
     Dosage: 25MG Per day
     Route: 048
     Dates: start: 201012
  2. FLOMAX [Concomitant]
  3. TOPROL XL [Concomitant]
  4. RENA-VITE [Concomitant]
  5. FISH OIL [Concomitant]
  6. SIMVASTATIN [Concomitant]
  7. MIDODRINE [Concomitant]
  8. PLAVIX [Concomitant]
  9. BABY ASA [Concomitant]

REACTIONS (1)
  - Death [Fatal]
